FAERS Safety Report 21509595 (Version 3)
Quarter: 2022Q4

REPORT INFORMATION
  Report Type: Spontaneous
  Country: CN (occurrence: CN)
  Receive Date: 20221026
  Receipt Date: 20221208
  Transmission Date: 20230113
  Serious: Yes (Other)
  Sender: FDA-Public Use
  Company Number: CN-ABBVIE-4174217

PATIENT

DRUGS (3)
  1. KALETRA [Suspect]
     Active Substance: LOPINAVIR\RITONAVIR
     Indication: Acquired immunodeficiency syndrome
     Dosage: 800 MILLIGRAM
     Route: 048
  2. LAMIVUDINE [Suspect]
     Active Substance: LAMIVUDINE
     Indication: Acquired immunodeficiency syndrome
     Dosage: 300 MILLIGRAM
     Route: 065
  3. TENOFOVIR ALAFENAMIDE FUMARATE [Suspect]
     Active Substance: TENOFOVIR ALAFENAMIDE FUMARATE
     Indication: Acquired immunodeficiency syndrome
     Dosage: 300 MILLIGRAM
     Route: 065

REACTIONS (7)
  - Myelosuppression [Unknown]
  - Rash [Unknown]
  - Gastrointestinal disorder [Unknown]
  - Alopecia [Unknown]
  - Sleep disorder [Unknown]
  - Hepatic function abnormal [Unknown]
  - Drug ineffective [Unknown]
